FAERS Safety Report 18885144 (Version 1)
Quarter: 2021Q1

REPORT INFORMATION
  Report Type: Spontaneous
  Country: US (occurrence: US)
  Receive Date: 20210211
  Receipt Date: 20210211
  Transmission Date: 20210420
  Serious: Yes (Disabling, Other)
  Sender: FDA-Public Use
  Company Number: None

PATIENT
  Age: 59 Year
  Sex: Male
  Weight: 69.3 kg

DRUGS (4)
  1. PAXIL [Concomitant]
     Active Substance: PAROXETINE HYDROCHLORIDE
  2. KLONOPIN [Concomitant]
     Active Substance: CLONAZEPAM
  3. MANUKAGUARD MEDICAL GRADE HONEY ALLERCLEANSE [Suspect]
     Active Substance: HERBALS\HONEY
     Indication: SINUSITIS
     Dosage: ?          QUANTITY:8 SPRAY(S);OTHER ROUTE:NASAL SPRAY?
     Dates: start: 20201201, end: 20210211
  4. FINASTERIDE. [Concomitant]
     Active Substance: FINASTERIDE

REACTIONS (5)
  - Respiratory distress [None]
  - Laryngitis bacterial [None]
  - Asthma [None]
  - Dyspnoea [None]
  - Cough [None]

NARRATIVE: CASE EVENT DATE: 20201204
